FAERS Safety Report 9963493 (Version 2)
Quarter: 2014Q1

REPORT INFORMATION
  Report Type: Report from Study
  Country: ES (occurrence: ES)
  Receive Date: 20140305
  Receipt Date: 20140305
  Transmission Date: 20141002
  Serious: Yes (Hospitalization)
  Sender: FDA-Public Use
  Company Number: PHHO2011ES01095

PATIENT
  Sex: 0

DRUGS (5)
  1. EVEROLIMUS [Suspect]
     Indication: HEPATOCELLULAR CARCINOMA
     Dosage: 7.5 MG, QD
     Route: 048
     Dates: start: 20101118, end: 20110113
  2. ORFIDAL [Concomitant]
     Indication: INSOMNIA
  3. MIRTAZAPINE [Concomitant]
     Indication: HEPATITIS C
  4. PANTOPRAZOLE [Concomitant]
  5. URSOCHOL [Concomitant]
     Indication: PRURITUS

REACTIONS (1)
  - Hyperkalaemia [Recovered/Resolved]
